FAERS Safety Report 5609725-3 (Version None)
Quarter: 2008Q1

REPORT INFORMATION
  Report Type: 
  Country: None (occurrence: None)
  Receive Date: 20080131
  Receipt Date: 20070917
  Transmission Date: 20080703
  Serious: No
  Sender: FDA-Public Use
  Company Number: US-BAYER-200712994BCC

PATIENT
  Age: 74 Year
  Sex: Female
  Weight: 79 kg

DRUGS (5)
  1. ALEVE [Suspect]
     Indication: PAIN
     Dosage: TOTAL DAILY DOSE: 220 MG  UNIT DOSE: 220 MG
     Route: 048
  2. ALEVE [Suspect]
     Dosage: UNIT DOSE: 220 MG
     Route: 048
  3. WARFARIN SODIUM [Concomitant]
  4. MELOXICAM [Concomitant]
  5. SYNTHROID [Concomitant]

REACTIONS (1)
  - CONTUSION [None]
